FAERS Safety Report 7027018-7 (Version None)
Quarter: 2010Q4

REPORT INFORMATION
  Report Type: 
  Country: None (occurrence: None)
  Receive Date: 20101004
  Receipt Date: 20100925
  Transmission Date: 20110411
  Serious: Yes (Other)
  Sender: FDA-Public Use
  Company Number: CN-JNJFOC-20100908622

PATIENT
  Sex: Female

DRUGS (2)
  1. DAKTARIN [Suspect]
     Route: 061
  2. DAKTARIN [Suspect]
     Indication: TINEA PEDIS
     Dosage: QUANTITY SUFFICIENT, AD. US. EXT
     Route: 061

REACTIONS (2)
  - EFFUSION [None]
  - SKIN EROSION [None]
